FAERS Safety Report 16890044 (Version 1)
Quarter: 2019Q4

REPORT INFORMATION
  Report Type: Other
  Country: US (occurrence: US)
  Receive Date: 20191007
  Receipt Date: 20191007
  Transmission Date: 20200122
  Serious: No
  Sender: FDA-Public Use
  Company Number: US-GLENMARK PHARMACEUTICALS-2019GMK041781

PATIENT

DRUGS (1)
  1. DROSPIRENONE/ETHINYL ESTRADIOL [Suspect]
     Active Substance: DROSPIRENONE\ETHINYL ESTRADIOL
     Indication: PRODUCT USED FOR UNKNOWN INDICATION
     Dosage: UNK
     Route: 065
     Dates: start: 201904, end: 201905

REACTIONS (30)
  - Hostility [Unknown]
  - Vision blurred [Unknown]
  - Muscle spasms [Unknown]
  - Feeling abnormal [Unknown]
  - Vulvovaginal pain [Unknown]
  - Aggression [Unknown]
  - Adnexa uteri pain [Unknown]
  - Eye complication associated with device [Unknown]
  - Libido decreased [Unknown]
  - Pelvic pain [Unknown]
  - Hypotension [Unknown]
  - Blepharospasm [Unknown]
  - Muscle tightness [Unknown]
  - Dysmenorrhoea [Unknown]
  - Dyspareunia [Unknown]
  - Asthma [Unknown]
  - Vulvovaginal dryness [Unknown]
  - Photophobia [Unknown]
  - Dizziness [Unknown]
  - Pain [Unknown]
  - Myalgia [Unknown]
  - Irritability [Unknown]
  - Migraine [Unknown]
  - Nausea [Unknown]
  - Loss of personal independence in daily activities [Unknown]
  - Depression [Unknown]
  - Product substitution issue [Unknown]
  - Pain in extremity [Unknown]
  - Crying [Unknown]
  - Anger [Unknown]

NARRATIVE: CASE EVENT DATE: 201904
